FAERS Safety Report 9283905 (Version 1)
Quarter: 2013Q2

REPORT INFORMATION
  Report Type: Spontaneous
  Country: US (occurrence: US)
  Receive Date: 20130510
  Receipt Date: 20130510
  Transmission Date: 20140414
  Serious: No
  Sender: FDA-Public Use
  Company Number: US-COVIDIEN/TYCO HEALTHCARE/MALLINCKRODT-T201301666

PATIENT
  Age: 53 Year
  Sex: Female

DRUGS (10)
  1. FENTANYL TRANSDERMAL SYSTEM [Suspect]
     Indication: PAIN
     Dosage: 50 MCG/HR, Q 72 HRS
     Route: 062
     Dates: start: 20130403
  2. QUINAPRIL [Concomitant]
     Indication: HYPERTENSION
     Dosage: UNK
  3. HYDROCHLOROTHIAZIDE [Concomitant]
     Indication: HYPERTENSION
     Dosage: UNK
  4. NEXIUM                             /01479302/ [Concomitant]
     Indication: GASTROOESOPHAGEAL REFLUX DISEASE
     Dosage: UNK
  5. CYMBALTA [Concomitant]
     Indication: DEPRESSION
     Dosage: 30 MG, UNK
  6. XANAX [Concomitant]
     Indication: ANXIETY
     Dosage: 0.5 MG, UNK
  7. PROAIR HFA [Concomitant]
     Indication: BRONCHITIS
     Dosage: UNK, PRN
  8. PROAIR HFA [Concomitant]
     Indication: HYPERSENSITIVITY
  9. LORTAB                             /00607101/ [Concomitant]
     Indication: BREAKTHROUGH PAIN
     Dosage: 7.5/500
  10. HYDROXYZINE [Concomitant]
     Indication: ANXIETY
     Dosage: , PRN

REACTIONS (6)
  - Pain [Recovering/Resolving]
  - Aphagia [Recovering/Resolving]
  - Diarrhoea [Recovering/Resolving]
  - Nervousness [Recovering/Resolving]
  - Nausea [Recovering/Resolving]
  - Weight decreased [Not Recovered/Not Resolved]
